FAERS Safety Report 7028180-2 (Version None)
Quarter: 2010Q4

REPORT INFORMATION
  Report Type: 
  Country: None (occurrence: None)
  Receive Date: 20101005
  Receipt Date: 20100927
  Transmission Date: 20110411
  Serious: No
  Sender: FDA-Public Use
  Company Number: US-B.I. PHARMACEUTICALS,INC./RIDGEFIELD-2010-BP-10251BP

PATIENT
  Sex: Male

DRUGS (10)
  1. SPIRIVA [Suspect]
     Indication: WHEEZING
     Dosage: 18 MCG
     Route: 055
     Dates: start: 20100831
  2. SPIRIVA [Suspect]
     Indication: COUGH
  3. SPIRIVA [Suspect]
     Indication: CHRONIC OBSTRUCTIVE PULMONARY DISEASE
  4. LASIX [Concomitant]
     Indication: PULMONARY OEDEMA
     Dosage: 40 MG
     Route: 048
  5. COUMADIN [Concomitant]
     Indication: ANTICOAGULANT THERAPY
     Dosage: 1 MG
     Route: 048
  6. HYTRIN [Concomitant]
     Indication: PROSTATIC DISORDER
     Dosage: 2 MG
     Route: 048
  7. METOPROLOL TARTRATE [Concomitant]
     Indication: HYPERTENSION
     Dosage: 25 MG
     Route: 048
  8. MICARDIS [Concomitant]
     Indication: HYPERTENSION
     Dosage: 10 MG
     Route: 048
  9. AMIODARONE [Concomitant]
  10. THEO-DUR [Concomitant]

REACTIONS (2)
  - DRUG EFFECT DECREASED [None]
  - DRUG INEFFECTIVE [None]
